FAERS Safety Report 10995550 (Version 1)
Quarter: 2015Q2

REPORT INFORMATION
  Report Type: Report from Study
  Country: AU (occurrence: AU)
  Receive Date: 20150407
  Receipt Date: 20150407
  Transmission Date: 20150821
  Serious: Yes (Death, Other)
  Sender: FDA-Public Use
  Company Number: AU-INCYTE CORPORATION-2014IN000899

PATIENT
  Age: 64 Year
  Sex: Female

DRUGS (1)
  1. JAKAFI [Suspect]
     Active Substance: RUXOLITINIB
     Indication: MYELOFIBROSIS
     Dosage: 20 MG, BID
     Route: 048
     Dates: start: 201201

REACTIONS (6)
  - Urinary tract infection viral [Unknown]
  - Splenic infarction [Unknown]
  - White blood cell count increased [Unknown]
  - Acute myeloid leukaemia [Unknown]
  - Death [Fatal]
  - Spleen disorder [Unknown]

NARRATIVE: CASE EVENT DATE: 201207
